FAERS Safety Report 13253752 (Version 2)
Quarter: 2017Q4

REPORT INFORMATION
  Report Type: Spontaneous
  Country: US (occurrence: US)
  Receive Date: 20170220
  Receipt Date: 20171027
  Transmission Date: 20180320
  Serious: Yes (Other)
  Sender: FDA-Public Use
  Company Number: US-ASTELLAS-2017US005925

PATIENT
  Age: 74 Year
  Sex: Male

DRUGS (2)
  1. XTANDI [Suspect]
     Active Substance: ENZALUTAMIDE
     Route: 048
     Dates: start: 20170119
  2. XTANDI [Suspect]
     Active Substance: ENZALUTAMIDE
     Indication: PROSTATE CANCER
     Route: 048
     Dates: start: 20161208

REACTIONS (7)
  - Diarrhoea [Unknown]
  - Blindness [Unknown]
  - Muscle spasms [Unknown]
  - Overdose [Unknown]
  - Lacrimation increased [Unknown]
  - Therapy non-responder [Unknown]
  - Insomnia [Unknown]

NARRATIVE: CASE EVENT DATE: 20171020
